FAERS Safety Report 10456468 (Version 1)
Quarter: 2014Q3

REPORT INFORMATION
  Report Type: Spontaneous
  Country: IT (occurrence: None)
  Receive Date: 20140912
  Receipt Date: 20140912
  Transmission Date: 20150326
  Serious: Yes (Other)
  Sender: FDA-Public Use
  Company Number: NL01PV14.37168

PATIENT
  Age: 57 Year
  Sex: Male

DRUGS (5)
  1. MIRTAZAPINE (MIRTAZAPINE) [Suspect]
     Active Substance: MIRTAZAPINE
     Indication: DEPRESSION
     Route: 048
     Dates: end: 20140816
  2. ZOLPIDEM [Suspect]
     Active Substance: ZOLPIDEM\ZOLPIDEM TARTRATE
     Indication: DEPRESSION
     Dosage: PO, QD.
     Dates: end: 20140816
  3. STRIBILD [Suspect]
     Active Substance: COBICISTAT\ELVITEGRAVIR\EMTRICITABINE\TENOFOVIR DISOPROXIL FUMARATE
     Indication: HIV INFECTION
     Dosage: 1 DF, DAILY (150MG/150 MG/ 200 MG/246 MG), ORAL
     Dates: start: 20140812
  4. LANSOPRAZOLE. [Concomitant]
     Active Substance: LANSOPRAZOLE
  5. METOPROLOL [Concomitant]
     Active Substance: METOPROLOL

REACTIONS (4)
  - Bradykinesia [None]
  - Bradyphrenia [None]
  - Somnolence [None]
  - Drug interaction [None]

NARRATIVE: CASE EVENT DATE: 20140819
